FAERS Safety Report 16150748 (Version 1)
Quarter: 2019Q2

REPORT INFORMATION
  Report Type: Spontaneous
  Country: US (occurrence: US)
  Receive Date: 20190402
  Receipt Date: 20190402
  Transmission Date: 20190711
  Serious: No
  Sender: FDA-Public Use
  Company Number: US-SA-2019SA084267

PATIENT
  Age: 54 Year
  Sex: Female
  Weight: 90.7 kg

DRUGS (23)
  1. LIDOCAINE. [Concomitant]
     Active Substance: LIDOCAINE
     Indication: PREMEDICATION
     Dosage: 2.5 %
     Dates: start: 20190116
  2. LIPITOR [Concomitant]
     Active Substance: ATORVASTATIN CALCIUM
     Dosage: 40 MG, QD
     Route: 048
     Dates: start: 20180112
  3. LEVOTHYROXINE. [Concomitant]
     Active Substance: LEVOTHYROXINE
     Dosage: 100 UG, PRN
     Route: 048
     Dates: start: 20180121
  4. COENZYME Q10 [Concomitant]
     Active Substance: UBIDECARENONE
     Dosage: 100 MG, QD
     Route: 048
     Dates: start: 20180112
  5. METOPROLOL TARTRATE AND HYDROCHLOROTHIAZIDE [Concomitant]
     Active Substance: HYDROCHLOROTHIAZIDE\METOPROLOL TARTRATE
     Dosage: 1 DF, BID
     Route: 048
     Dates: start: 20180112
  6. OMEGA-3 [DOCOSAHEXAENOIC ACID;EICOSAPENTAENOIC ACID] [Concomitant]
     Active Substance: DOCONEXENT\ICOSAPENT
     Dosage: 1 DF, QD
     Route: 048
     Dates: start: 20180112
  7. HEPARIN [Concomitant]
     Active Substance: HEPARIN SODIUM
     Indication: FLUSHING
     Dosage: 100 UN/ML, PRN
     Route: 042
     Dates: start: 20190116
  8. NITROSTAT [Concomitant]
     Active Substance: NITROGLYCERIN
     Dosage: 0.4 MG, PRN
     Route: 060
  9. PANTOPRAZOLE [Concomitant]
     Active Substance: PANTOPRAZOLE
     Dosage: 40 MG, QD
     Route: 048
     Dates: start: 20180903
  10. DICLOFENAC [DICLOFENAC POTASSIUM] [Concomitant]
     Dosage: 50 MG, PRN
     Route: 048
     Dates: start: 20180903
  11. DOCUSATE [Concomitant]
     Active Substance: DOCUSATE
     Dosage: 100 MG, PRN
     Route: 048
     Dates: start: 20180826
  12. CYCLOBENZAPRINE. [Concomitant]
     Active Substance: CYCLOBENZAPRINE
     Dosage: 10 MG, BID
     Route: 048
     Dates: start: 20180112
  13. FABRAZYME [Suspect]
     Active Substance: AGALSIDASE BETA
     Indication: FABRY^S DISEASE
     Dosage: 92 MG, QOW
     Route: 041
     Dates: start: 20180115
  14. NORMAL SALINE [Concomitant]
     Active Substance: SODIUM CHLORIDE
     Dosage: 0.9 %, PRN
     Route: 042
  15. LORAZEPAM. [Concomitant]
     Active Substance: LORAZEPAM
     Dosage: 0.5 MG, QD
     Route: 048
     Dates: start: 20180112
  16. EPINEPHRINE. [Concomitant]
     Active Substance: EPINEPHRINE
     Indication: ANAPHYLACTIC REACTION
     Dosage: 0.3 MG, PRN
     Route: 042
     Dates: start: 20190116
  17. LOSARTIN [Concomitant]
     Active Substance: LOSARTAN
     Dosage: 50 MG, PRN
     Route: 048
     Dates: start: 20180828
  18. DICLOMINE [DICLOFENAC SODIUM;PARACETAMOL] [Concomitant]
     Dosage: 10 MG, BID
     Route: 048
     Dates: start: 20080121
  19. DIPHENHYDRAMINE. [Concomitant]
     Active Substance: DIPHENHYDRAMINE
     Indication: ANAPHYLACTIC REACTION
     Dosage: 25 MG, PRN
     Route: 048
     Dates: start: 20190116
  20. SODIUM CHLORIDE. [Concomitant]
     Active Substance: SODIUM CHLORIDE
     Indication: FLUSHING
     Dosage: 0.9 %, PRN
     Route: 042
     Dates: start: 20190116
  21. STERILE WATER [Concomitant]
     Active Substance: WATER
     Dosage: 1 DF, PRN
     Route: 042
     Dates: start: 20190116
  22. SERTRALINE [Concomitant]
     Active Substance: SERTRALINE HYDROCHLORIDE
     Dosage: 100 MG, QD
     Route: 048
     Dates: start: 20180903
  23. AMITRIPTYLINE [Concomitant]
     Active Substance: AMITRIPTYLINE
     Dosage: 25 MG, HS
     Route: 048
     Dates: start: 20180112

REACTIONS (2)
  - Pain [Unknown]
  - Fatigue [Unknown]

NARRATIVE: CASE EVENT DATE: 201903
